FAERS Safety Report 5826430-9 (Version None)
Quarter: 2008Q3

REPORT INFORMATION
  Report Type: 
  Country: None (occurrence: None)
  Receive Date: 20080729
  Receipt Date: 20080717
  Transmission Date: 20090109
  Serious: Yes (Other)
  Sender: FDA-Public Use
  Company Number: US-PFIZER INC-2008060854

PATIENT
  Age: 14 Year
  Sex: Female

DRUGS (2)
  1. CLINDAMYCIN HYDROCHLORIDE [Suspect]
     Indication: SKIN LESION
  2. RISPERIDONE [Interacting]
     Dosage: DAILY DOSE:5.5MG

REACTIONS (2)
  - DRUG INTERACTION [None]
  - DYSKINESIA [None]
